FAERS Safety Report 16787355 (Version 2)
Quarter: 2019Q3

REPORT INFORMATION
  Report Type: Report from Study
  Country: TR (occurrence: TR)
  Receive Date: 20190909
  Receipt Date: 20190913
  Transmission Date: 20191005
  Serious: Yes (Death, Life-Threatening, Hospitalization)
  Sender: FDA-Public Use
  Company Number: TR-ASTRAZENECA-2019SE35538

PATIENT
  Age: 26298 Day
  Sex: Male

DRUGS (7)
  1. DURVALUMAB. [Suspect]
     Active Substance: DURVALUMAB
     Indication: NON-SMALL CELL LUNG CANCER
     Route: 042
     Dates: start: 20181228, end: 20181228
  2. DURVALUMAB. [Suspect]
     Active Substance: DURVALUMAB
     Indication: NON-SMALL CELL LUNG CANCER
     Route: 042
     Dates: start: 20190125, end: 20190125
  3. DURVALUMAB. [Suspect]
     Active Substance: DURVALUMAB
     Indication: NON-SMALL CELL LUNG CANCER
     Route: 042
     Dates: start: 20190221, end: 20190221
  4. METILPREDNIZOLON SODYUM SUKSINAT [Suspect]
     Active Substance: METHYLPREDNISOLONE SODIUM SUCCINATE
     Indication: MYOCARDITIS
     Route: 042
     Dates: start: 20190308, end: 20190311
  5. METILPREDNIZOLON SODYUM SUKSINAT [Suspect]
     Active Substance: METHYLPREDNISOLONE SODIUM SUCCINATE
     Indication: MYOCARDITIS
     Route: 042
     Dates: start: 20190311
  6. VENTOFOR-COMBI [Concomitant]
     Indication: CHRONIC OBSTRUCTIVE PULMONARY DISEASE
     Dosage: 400.0 MCG PRN
     Route: 055
     Dates: start: 2010
  7. METILPREDNIZOLON SODYUM SUKSINAT [Suspect]
     Active Substance: METHYLPREDNISOLONE SODIUM SUCCINATE
     Indication: MYOCARDITIS
     Route: 042
     Dates: start: 20190304, end: 20190308

REACTIONS (4)
  - Sepsis [Not Recovered/Not Resolved]
  - Pneumonia [Recovered/Resolved]
  - Lung infection [Recovered/Resolved]
  - Myocarditis [Fatal]

NARRATIVE: CASE EVENT DATE: 20190301
